FAERS Safety Report 25680770 (Version 2)
Quarter: 2025Q4

REPORT INFORMATION
  Report Type: Spontaneous
  Country: EU (occurrence: EU)
  Receive Date: 20250814
  Receipt Date: 20251013
  Transmission Date: 20260117
  Serious: Yes (Hospitalization)
  Sender: FERRING
  Company Number: None

PATIENT

DRUGS (5)
  1. FIRMAGON [Suspect]
     Active Substance: DEGARELIX ACETATE
     Indication: Prostate cancer
     Dosage: 1 DOSAGE FORM, 1 TIME DAILY
     Route: 058
     Dates: start: 20250207, end: 20250526
  2. TAXOTERE [Suspect]
     Active Substance: DOCETAXEL
     Indication: Prostate cancer
     Dosage: 144 MG (75MG/M2) 6 CYCLES SCHEDULED EVERY 21 DAYS
     Route: 042
     Dates: start: 20250207, end: 20250526
  3. NUBEQA [Suspect]
     Active Substance: DAROLUTAMIDE
     Indication: Prostate cancer
     Dosage: 600 MG, 2 TIMES DAILY
     Route: 048
     Dates: start: 20250207
  4. ATORVASTATIN [Concomitant]
     Active Substance: ATORVASTATIN
     Dosage: 10 MG
     Route: 065
  5. METHYLPREDNISOLONE [Concomitant]
     Active Substance: METHYLPREDNISOLONE
     Indication: Premedication
     Dosage: 80 MG
     Route: 065

REACTIONS (6)
  - Interstitial lung disease [Recovering/Resolving]
  - Polyuria [Unknown]
  - Dyspepsia [Unknown]
  - Neuropathy peripheral [Unknown]
  - Xerophthalmia [Unknown]
  - Hypoaesthesia [Unknown]

NARRATIVE: CASE EVENT DATE: 20250526
